FAERS Safety Report 20475674 (Version 1)
Quarter: 2022Q1

REPORT INFORMATION
  Report Type: Report from Study
  Country: EG (occurrence: EG)
  Receive Date: 20220215
  Receipt Date: 20220215
  Transmission Date: 20220424
  Serious: Yes (Other)
  Sender: FDA-Public Use
  Company Number: EG-NOVARTISPH-NVSC2022EG034284

PATIENT
  Age: 52 Year
  Sex: Female

DRUGS (8)
  1. KISQALI [Suspect]
     Active Substance: RIBOCICLIB
     Indication: Breast cancer metastatic
     Dosage: 200 MG, 3 TABLETS PER DAY FOR 3 WEEKS THEN ONE WEEK OFF
     Route: 048
     Dates: start: 202006, end: 202202
  2. XGEVA [Concomitant]
     Active Substance: DENOSUMAB
     Indication: Breast cancer metastatic
     Dosage: UNK, ONE EVERY 3 MONTHS
     Route: 065
     Dates: start: 2020
  3. XGEVA [Concomitant]
     Active Substance: DENOSUMAB
     Indication: Metastases to bone
     Dosage: UNK UNK, ONE EVERY 3 MONTHS
     Route: 065
     Dates: start: 2021
  4. FASLODEX [Concomitant]
     Active Substance: FULVESTRANT
     Indication: Breast cancer metastatic
     Dosage: UNK,ONE EVERY MONTH
     Route: 065
     Dates: start: 2020, end: 20220209
  5. FASLODEX [Concomitant]
     Active Substance: FULVESTRANT
     Dosage: UNK, ONE EVERY MONTH
     Route: 065
     Dates: start: 2021
  6. ZOLADEX [Concomitant]
     Active Substance: GOSERELIN ACETATE
     Indication: Breast cancer metastatic
     Dosage: UNK,  ONE INJECTION EVERY WEEK FOR 3 WEEKS THEN ONE INJECTION EVERY MONTH
     Route: 065
     Dates: start: 2020, end: 20220209
  7. BLOKIUM [Concomitant]
     Indication: Hypertension
     Dosage: 2 YEARS AGO, ONE TABLET PER DAY AT NIGHT
     Route: 065
  8. LEVOTHYROXINE SODIUM [Concomitant]
     Active Substance: LEVOTHYROXINE SODIUM
     Indication: Hypothyroidism
     Dosage: FROM 30 YEARS, ONE TABLET IN THE MORNING
     Route: 065

REACTIONS (6)
  - Depression [Unknown]
  - Metastases to liver [Not Recovered/Not Resolved]
  - Hypersensitivity [Recovering/Resolving]
  - Cough [Recovering/Resolving]
  - Red blood cell sedimentation rate increased [Not Recovered/Not Resolved]
  - Blood uric acid increased [Not Recovered/Not Resolved]

NARRATIVE: CASE EVENT DATE: 20200601
